FAERS Safety Report 12565519 (Version 1)
Quarter: 2016Q3

REPORT INFORMATION
  Report Type: Report from Study
  Country: US (occurrence: US)
  Receive Date: 20160718
  Receipt Date: 20160718
  Transmission Date: 20161109
  Serious: Yes (Other)
  Sender: FDA-Public Use
  Company Number: US-JNJFOC-20160708694

PATIENT
  Age: 60 Year
  Sex: Male
  Weight: 119 kg

DRUGS (17)
  1. MELOXICAM. [Concomitant]
     Active Substance: MELOXICAM
     Route: 048
  2. JANUVIA [Concomitant]
     Active Substance: SITAGLIPTIN PHOSPHATE
     Route: 048
  3. COMPAZINE [Concomitant]
     Active Substance: PROCHLORPERAZINE MALEATE
     Dosage: 10 MG, Q8H, PRN
     Route: 048
  4. FARXIGA [Concomitant]
     Active Substance: DAPAGLIFLOZIN PROPANEDIOL
     Route: 048
  5. FISH OIL [Concomitant]
     Active Substance: FISH OIL
     Route: 048
  6. GLIMEPIRIDE. [Concomitant]
     Active Substance: GLIMEPIRIDE
     Route: 048
  7. AMITRIPTYLINE [Concomitant]
     Active Substance: AMITRIPTYLINE
     Dosage: 30 MG, QHS
     Route: 048
  8. LAMICTAL [Concomitant]
     Active Substance: LAMOTRIGINE
     Route: 048
  9. GLUCOPHAGE LA [Concomitant]
     Dosage: 1-500 MG TAB IN AM, 2-500 MG TABS IN PM
     Route: 048
  10. RISPERDAL [Concomitant]
     Active Substance: RISPERIDONE
     Route: 048
  11. PLAVIX [Concomitant]
     Active Substance: CLOPIDOGREL BISULFATE
     Route: 048
  12. IMBRUVICA [Suspect]
     Active Substance: IBRUTINIB
     Indication: CHRONIC LYMPHOCYTIC LEUKAEMIA
     Route: 048
     Dates: start: 201507
  13. ATORVASTATIN [Concomitant]
     Active Substance: ATORVASTATIN
     Route: 048
  14. XALATAN [Concomitant]
     Active Substance: LATANOPROST
     Dosage: 1 GTT IN EACH EYE IN PM
     Route: 047
  15. ASPIRIN. [Concomitant]
     Active Substance: ASPIRIN
     Route: 048
  16. PROZAC [Concomitant]
     Active Substance: FLUOXETINE HYDROCHLORIDE
     Route: 048
  17. ESKALITH [Concomitant]
     Active Substance: LITHIUM CARBONATE
     Route: 048

REACTIONS (17)
  - Flank pain [Recovered/Resolved]
  - Conjunctival operation [Unknown]
  - Umbilical hernia [Unknown]
  - Inguinal hernia [Unknown]
  - Polypectomy [Unknown]
  - Lymphadenopathy [Unknown]
  - Abdominal pain [Unknown]
  - Nephrolithiasis [Unknown]
  - Bipolar disorder [Unknown]
  - Tremor [Not Recovered/Not Resolved]
  - Constipation [Unknown]
  - Osteoarthritis [Not Recovered/Not Resolved]
  - Abdominal distension [Unknown]
  - Diverticulum intestinal [Unknown]
  - Polydipsia [Unknown]
  - Nausea [Unknown]
  - Dizziness [Unknown]

NARRATIVE: CASE EVENT DATE: 2015
